FAERS Safety Report 23867561 (Version 1)
Quarter: 2024Q2

REPORT INFORMATION
  Report Type: Spontaneous
  Country: US (occurrence: US)
  Receive Date: 20240517
  Receipt Date: 20240517
  Transmission Date: 20240716
  Serious: No
  Sender: FDA-Public Use
  Company Number: US-BAYER-2024A067308

PATIENT
  Age: 98 Year
  Sex: Female

DRUGS (1)
  1. CIPRO [Suspect]
     Active Substance: CIPROFLOXACIN\CIPROFLOXACIN HYDROCHLORIDE
     Dosage: UNK
     Route: 048
     Dates: start: 20240503, end: 20240503

REACTIONS (2)
  - Pain in extremity [None]
  - Fear [None]
